FAERS Safety Report 8519921 (Version 5)
Quarter: 2017Q4

REPORT INFORMATION
  Report Type: Spontaneous
  Country: US (occurrence: US)
  Receive Date: 20120418
  Receipt Date: 20171117
  Transmission Date: 20180321
  Serious: No
  Sender: FDA-Public Use
  Company Number: US-ASTRAZENECA-2011SE74065

PATIENT
  Age: 80 Year
  Sex: Male
  Weight: 79.4 kg

DRUGS (10)
  1. DEXILANT [Concomitant]
     Active Substance: DEXLANSOPRAZOLE
  2. VITAMIN B12 [Concomitant]
     Active Substance: CYANOCOBALAMIN
     Dosage: 1000 U
     Route: 058
  3. FOLIC ACID. [Concomitant]
     Active Substance: FOLIC ACID
  4. NEXIUM [Suspect]
     Active Substance: ESOMEPRAZOLE MAGNESIUM
     Indication: HIATUS HERNIA
     Route: 048
  5. LASIX [Concomitant]
     Active Substance: FUROSEMIDE
  6. ASA [Concomitant]
     Active Substance: ASPIRIN
  7. TOPROL XL [Interacting]
     Active Substance: METOPROLOL SUCCINATE
     Route: 048
  8. VITAMIN D [Concomitant]
     Active Substance: CHOLECALCIFEROL
     Dosage: 1000 IU
  9. ZESTRIL [Interacting]
     Active Substance: LISINOPRIL
     Dosage: GENERIC FORM
     Route: 048
  10. PRILOSEC [Interacting]
     Active Substance: OMEPRAZOLE MAGNESIUM
     Indication: GASTROOESOPHAGEAL REFLUX DISEASE
     Dosage: GENERIC - 20 MG DAILY
     Route: 048
     Dates: start: 20171024

REACTIONS (12)
  - Hypertension [Unknown]
  - Adjustment disorder with depressed mood [Unknown]
  - Decreased appetite [Unknown]
  - Off label use [Unknown]
  - Product use issue [Unknown]
  - Drug interaction [Unknown]
  - Depressed mood [Unknown]
  - Drug hypersensitivity [Unknown]
  - Dysphagia [Unknown]
  - Feeding disorder [Unknown]
  - Hyponatraemia [Unknown]
  - Weight decreased [Unknown]
